FAERS Safety Report 8620819-0 (Version None)
Quarter: 2012Q3

REPORT INFORMATION
  Report Type: 
  Country: None (occurrence: None)
  Receive Date: 20120824
  Receipt Date: 20120810
  Transmission Date: 20120928
  Serious: Yes (Other)
  Sender: FDA-Public Use
  Company Number: ES-SPECTRUM PHARMACEUTICALS, INC.-12-F-ES-00124

PATIENT
  Age: 64 Year
  Sex: Female

DRUGS (6)
  1. GRANISETRON [Concomitant]
     Indication: PREMEDICATION
     Dosage: 1 MG, UNK
     Route: 042
  2. FLUOROURACIL [Suspect]
     Dosage: 400 MG/M2, EVERY TWO WEEKS
     Route: 040
  3. FLUOROURACIL [Suspect]
     Indication: COLORECTAL CANCER METASTATIC
     Dosage: 2400 MG/M2, OVER 48 HRS., EVERY TWO WEEKS
     Route: 042
  4. OXALIPLATIN [Suspect]
     Indication: COLORECTAL CANCER METASTATIC
     Dosage: 85 MG/M2, EVERY TWO WEEKS
     Route: 042
  5. DEXAMETHASONE [Concomitant]
     Indication: PREMEDICATION
     Dosage: 20 MG, UNK
     Route: 042
  6. LEUCOVORIN CALCIUM [Suspect]
     Indication: COLORECTAL CANCER METASTATIC
     Dosage: 200 MG/M2, EVERY TWO WEEKS
     Route: 042

REACTIONS (7)
  - BLOOD ALKALINE PHOSPHATASE INCREASED [None]
  - SINUS TACHYCARDIA [None]
  - ANGINA PECTORIS [None]
  - GAMMA-GLUTAMYLTRANSFERASE INCREASED [None]
  - CUTANEOUS LUPUS ERYTHEMATOSUS [None]
  - ECZEMA [None]
  - BLOOD LACTATE DEHYDROGENASE INCREASED [None]
